FAERS Safety Report 8448352-X (Version None)
Quarter: 2012Q2

REPORT INFORMATION
  Report Type: 
  Country: None (occurrence: None)
  Receive Date: 20120619
  Receipt Date: 20120612
  Transmission Date: 20120825
  Serious: No
  Sender: FDA-Public Use
  Company Number: US-PFIZER INC-2012063508

PATIENT
  Sex: Male
  Weight: 79.365 kg

DRUGS (12)
  1. VFEND [Suspect]
     Indication: FUNGAL INFECTION
     Dosage: 200 MG, 2X/DAY
     Route: 048
     Dates: start: 20111226
  2. ADDERALL 5 [Concomitant]
     Indication: SLEEP APNOEA SYNDROME
     Dosage: 5 MG, 2X/DAY
  3. EFFEXOR [Concomitant]
     Indication: DEPRESSION
     Dosage: 37.5 MG, DAILY
  4. EFFEXOR [Concomitant]
     Dosage: 37.5 + 75 MG
  5. ALTACE [Concomitant]
     Indication: ECHOCARDIOGRAM ABNORMAL
  6. VORICONAZOLE [Suspect]
     Indication: FUNGAL INFECTION
     Dosage: UNK
     Route: 048
     Dates: end: 20111201
  7. DOXYCYCLINE [Suspect]
     Dosage: UNK
  8. POLYETHYLENE GLYCOL [Concomitant]
     Indication: CONSTIPATION
     Dosage: 17 G, DAILY
  9. NORVASC [Suspect]
     Indication: ARTERIOSPASM CORONARY
     Dosage: 5 MG, 2X/DAY
     Dates: start: 20060919
  10. NORVASC [Suspect]
     Indication: OESOPHAGEAL SPASM
  11. ALTACE [Concomitant]
     Indication: ECHOGRAPHY ABNORMAL
     Dosage: 2.5 MG, DAILY
  12. CRESTOR [Concomitant]
     Indication: BLOOD CHOLESTEROL INCREASED
     Dosage: 10 MG, DAILY

REACTIONS (16)
  - VISUAL IMPAIRMENT [None]
  - OEDEMA PERIPHERAL [None]
  - SKIN HYPERPIGMENTATION [None]
  - SWELLING [None]
  - PAIN [None]
  - MALAISE [None]
  - ERYTHEMA [None]
  - HEADACHE [None]
  - GASTROINTESTINAL DISORDER [None]
  - CHILLS [None]
  - DIZZINESS [None]
  - RASH [None]
  - FATIGUE [None]
  - PHOTOSENSITIVITY REACTION [None]
  - DRUG INTOLERANCE [None]
  - SKIN EXFOLIATION [None]
